FAERS Safety Report 12505926 (Version 2)
Quarter: 2016Q3

REPORT INFORMATION
  Report Type: Report from Study
  Country: US (occurrence: US)
  Receive Date: 20160628
  Receipt Date: 20160707
  Transmission Date: 20161109
  Serious: Yes (Death, Other)
  Sender: FDA-Public Use
  Company Number: US-CONCORDIA PHARMACEUTICALS INC.-GSH201606-003249

PATIENT
  Age: 20 Year
  Sex: Male

DRUGS (5)
  1. CLONIDINE. [Suspect]
     Active Substance: CLONIDINE
     Indication: EPILEPSY
     Route: 065
  2. IMIPRAMINE [Suspect]
     Active Substance: IMIPRAMINE
     Indication: EPILEPSY
     Route: 065
  3. LEVETIRACETAM. [Suspect]
     Active Substance: LEVETIRACETAM
     Indication: EPILEPSY
     Route: 065
  4. LORAZEPAM. [Suspect]
     Active Substance: LORAZEPAM
     Indication: EPILEPSY
     Route: 065
  5. TRAZODONE [Suspect]
     Active Substance: TRAZODONE HYDROCHLORIDE
     Indication: EPILEPSY
     Route: 065

REACTIONS (2)
  - Product use issue [Unknown]
  - Status epilepticus [Fatal]
